FAERS Safety Report 9587748 (Version 1)
Quarter: 2013Q4

REPORT INFORMATION
  Report Type: Spontaneous
  Country: US (occurrence: US)
  Receive Date: 20131003
  Receipt Date: 20131003
  Transmission Date: 20140711
  Serious: No
  Sender: FDA-Public Use
  Company Number: US-COVIDIEN/TYCO HEALTHCARE/MALLINCKRODT-T201302592

PATIENT
  Age: 65 Year
  Sex: Female
  Weight: 86.17 kg

DRUGS (8)
  1. EXALGO EXTENDED RELEASE [Suspect]
     Indication: CANCER PAIN
     Dosage: 16 MG, QD
     Route: 048
     Dates: start: 20130417
  2. METOPROLOL [Concomitant]
     Dosage: 12.5 MG QD
     Route: 048
  3. DIGOXIN [Concomitant]
     Dosage: 0.125 QD
  4. CARDIAZEM                          /00489701/ [Concomitant]
     Dosage: 60 MG BID
  5. PROTONIX [Concomitant]
     Dosage: 40 MG QD
  6. VITAMIN D                          /00107901/ [Concomitant]
     Dosage: UNK
  7. VITAMIN C                          /00008001/ [Concomitant]
     Dosage: UNK
  8. MULTIVITAMIN                       /00831701/ [Concomitant]
     Dosage: UNK

REACTIONS (3)
  - Tongue blistering [Not Recovered/Not Resolved]
  - Hypersomnia [Not Recovered/Not Resolved]
  - Decreased appetite [Not Recovered/Not Resolved]
